FAERS Safety Report 6968391-5 (Version None)
Quarter: 2010Q3

REPORT INFORMATION
  Report Type: 
  Country: None (occurrence: None)
  Receive Date: 20100907
  Receipt Date: 20100827
  Transmission Date: 20110219
  Serious: Yes (Life-Threatening)
  Sender: FDA-Public Use
  Company Number: US-ROCHE-724265

PATIENT
  Age: 50 Year
  Sex: Female

DRUGS (8)
  1. KLONOPIN [Suspect]
     Indication: PRODUCT USED FOR UNKNOWN INDICATION
     Dosage: FREQUENCY: DAILY, DAILY DOSE: UNKNOWN, FORM: PILLS
     Route: 065
  2. CLONAZEPAM [Suspect]
     Indication: PRODUCT USED FOR UNKNOWN INDICATION
     Dosage: FREQUENCY: DAILY, DAILY DOSE: UNKNOWN,  FORM: PILLS
     Route: 065
  3. CYMBALTA [Suspect]
     Indication: PRODUCT USED FOR UNKNOWN INDICATION
     Dosage: FREQUENCY: DAILY, DAILY DOSE: UNKNOWN, FORM: PILLS
     Route: 065
  4. AMBIEN [Suspect]
     Indication: PRODUCT USED FOR UNKNOWN INDICATION
     Dosage: FREQUENCY: DAILY, DAILY DOSE: UNKNOWN,  FORM: PILLS
     Route: 065
  5. LYRICA [Suspect]
     Indication: PRODUCT USED FOR UNKNOWN INDICATION
     Dosage: FREQUENCY: DAILY, DAILY DOSE: UNKNOWN, FORM: PILLS
     Route: 065
  6. COMPRO [Suspect]
     Indication: PRODUCT USED FOR UNKNOWN INDICATION
     Dosage: FREQUENCY: DAILY, DAILY DOSE: UNKNOWN,  FORM: PILLS
     Route: 065
  7. PROMETRIUM [Suspect]
     Indication: PRODUCT USED FOR UNKNOWN INDICATION
     Dosage: FREQUENCY: DAILY, DAILY DOSE: UNKNOWN,  FORM: PILLS
     Route: 065
  8. SUBUTEX [Suspect]
     Indication: PRODUCT USED FOR UNKNOWN INDICATION
     Dosage: FREQUENCY: DAILY, DAILY DOSE: UNKNOWN,  FORM: PILLS
     Route: 060

REACTIONS (3)
  - LOSS OF CONSCIOUSNESS [None]
  - OVERDOSE [None]
  - SUICIDE ATTEMPT [None]
